FAERS Safety Report 19889160 (Version 4)
Quarter: 2021Q4

REPORT INFORMATION
  Report Type: Spontaneous
  Country: JP (occurrence: JP)
  Receive Date: 20210927
  Receipt Date: 20211206
  Transmission Date: 20220303
  Serious: Yes (Other)
  Sender: FDA-Public Use
  Company Number: JP-ALLERGAN-2124150US

PATIENT
  Sex: Female

DRUGS (2)
  1. BOTOX [Suspect]
     Active Substance: ONABOTULINUMTOXINA
     Indication: Blepharospasm
     Dosage: 7.5 UNITS, SINGLE
     Route: 030
     Dates: start: 20210524, end: 20210524
  2. BOTOX [Suspect]
     Active Substance: ONABOTULINUMTOXINA
     Indication: Facial spasm
     Dosage: 20 UNITS, SINGLE
     Route: 030
     Dates: start: 20200826, end: 20200826

REACTIONS (11)
  - IVth nerve paralysis [Recovered/Resolved]
  - Facial paralysis [Recovering/Resolving]
  - Corneal erosion [Recovering/Resolving]
  - Anxiety [Recovering/Resolving]
  - Asthenopia [Recovered/Resolved]
  - Insomnia [Recovering/Resolving]
  - Excessive eye blinking [Recovered/Resolved]
  - Strabismus [Recovered/Resolved]
  - Diplopia [Recovered/Resolved]
  - Dry eye [Recovering/Resolving]
  - Lagophthalmos [Recovered/Resolved]

NARRATIVE: CASE EVENT DATE: 20200828
